FAERS Safety Report 22927976 (Version 2)
Quarter: 2023Q4

REPORT INFORMATION
  Report Type: Spontaneous
  Country: JP (occurrence: JP)
  Receive Date: 20230911
  Receipt Date: 20231003
  Transmission Date: 20240109
  Serious: Yes (Death, Hospitalization, Other)
  Sender: FDA-Public Use
  Company Number: JP-AMGEN-JPNSP2023158815

PATIENT
  Age: 82 Year
  Sex: Female

DRUGS (1)
  1. EVENITY [Suspect]
     Active Substance: ROMOSOZUMAB-AQQG
     Indication: Osteoporosis
     Dosage: 210 MILLIGRAM
     Route: 058

REACTIONS (2)
  - Peritonitis [Fatal]
  - Large intestine perforation [Fatal]

NARRATIVE: CASE EVENT DATE: 20230811
